FAERS Safety Report 8311895-3 (Version None)
Quarter: 2012Q2

REPORT INFORMATION
  Report Type: 
  Country: None (occurrence: None)
  Receive Date: 20120425
  Receipt Date: 20120417
  Transmission Date: 20120825
  Serious: Yes (Other)
  Sender: FDA-Public Use
  Company Number: US-ACTELION-A-US2012-61453

PATIENT

DRUGS (4)
  1. VENTAVIS [Suspect]
     Indication: PULMONARY ARTERIAL HYPERTENSION
     Dosage: UNK
     Route: 055
     Dates: start: 20071217
  2. REVATIO [Concomitant]
  3. TRACLEER [Suspect]
     Indication: PULMONARY ARTERIAL HYPERTENSION
     Dosage: UNK
     Route: 048
     Dates: start: 20110203
  4. DIGOXIN [Concomitant]

REACTIONS (15)
  - DECREASED APPETITE [None]
  - VOMITING [None]
  - DIZZINESS [None]
  - HYPOTENSION [None]
  - SYNCOPE [None]
  - HEPATIC CONGESTION [None]
  - PULMONARY OEDEMA [None]
  - DIARRHOEA [None]
  - FATIGUE [None]
  - COUGH [None]
  - CHEST PAIN [None]
  - ASTHENIA [None]
  - PULMONARY CONGESTION [None]
  - NAUSEA [None]
  - HEADACHE [None]
